FAERS Safety Report 25255654 (Version 1)
Quarter: 2025Q2

REPORT INFORMATION
  Report Type: Other
  Country: NL (occurrence: NL)
  Receive Date: 20250430
  Receipt Date: 20250430
  Transmission Date: 20250716
  Serious: Yes (Death, Hospitalization, Other)
  Sender: WES PHARMA INC
  Company Number: NL-WES Pharma Inc-2175826

PATIENT
  Age: 23 Year
  Sex: Male

DRUGS (4)
  1. OXYCODONE HYDROCHLORIDE [Suspect]
     Active Substance: OXYCODONE HYDROCHLORIDE
     Indication: Product used for unknown indication
  2. QUETIAPINE [Suspect]
     Active Substance: QUETIAPINE
  3. COCAINE HYDROCHLORIDE [Suspect]
     Active Substance: COCAINE HYDROCHLORIDE
  4. ALCOHOL [Suspect]
     Active Substance: ALCOHOL

REACTIONS (15)
  - Toxic leukoencephalopathy [Fatal]
  - Overdose [Unknown]
  - Substance abuse [Fatal]
  - Shock [Fatal]
  - Respiration abnormal [Fatal]
  - Hyperlactacidaemia [Fatal]
  - Toxicity to various agents [Fatal]
  - Renal failure [Fatal]
  - Hepatic failure [Fatal]
  - Multiple organ dysfunction syndrome [Fatal]
  - Rhabdomyolysis [Fatal]
  - Hyperkalaemia [Fatal]
  - Acute kidney injury [Fatal]
  - Coma [Fatal]
  - Pupil fixed [Fatal]
